FAERS Safety Report 5440983-4 (Version None)
Quarter: 2007Q3

REPORT INFORMATION
  Report Type: 
  Country: None (occurrence: None)
  Receive Date: 20070831
  Receipt Date: 20070820
  Transmission Date: 20080115
  Serious: Yes (Hospitalization, Other)
  Sender: FDA-Public Use
  Company Number: US-PFIZER INC-2007023695

PATIENT
  Sex: Female

DRUGS (13)
  1. NEURONTIN [Suspect]
     Indication: AGITATION
     Dates: start: 20031101, end: 20041201
  2. ARICEPT [Suspect]
     Dates: start: 20031101, end: 20041201
  3. GLUCOTROL [Concomitant]
  4. METFORMIN HCL [Concomitant]
  5. LISINOPRIL [Concomitant]
  6. INSULIN [Concomitant]
  7. LANTUS [Concomitant]
  8. NPH INSULIN [Concomitant]
  9. ZYPREXA [Concomitant]
  10. MIRTAZAPINE [Concomitant]
  11. DIGOXIN [Concomitant]
  12. ASPIRIN [Concomitant]
  13. OPHTHALMOLOGICALS [Concomitant]

REACTIONS (22)
  - AGITATION [None]
  - AMNESIA [None]
  - ATRIAL FIBRILLATION [None]
  - BLINDNESS [None]
  - CONFUSIONAL STATE [None]
  - CONTUSION [None]
  - FALL [None]
  - FRACTURE [None]
  - GAIT DISTURBANCE [None]
  - GENERAL PHYSICAL HEALTH DETERIORATION [None]
  - HALLUCINATION [None]
  - HIP FRACTURE [None]
  - HYPONATRAEMIA [None]
  - OVERDOSE [None]
  - PLATELET COUNT INCREASED [None]
  - PNEUMONIA [None]
  - PNEUMONIA ASPIRATION [None]
  - RESPIRATORY FAILURE [None]
  - RESTLESSNESS [None]
  - SPONDYLOLISTHESIS [None]
  - ULNA FRACTURE [None]
  - URINARY TRACT INFECTION [None]
